FAERS Safety Report 17355165 (Version 3)
Quarter: 2020Q3

REPORT INFORMATION
  Report Type: Spontaneous
  Country: US (occurrence: US)
  Receive Date: 20200131
  Receipt Date: 20200908
  Transmission Date: 20201102
  Serious: Yes (Other)
  Sender: FDA-Public Use
  Company Number: US-GILEAD-2020-0448726

PATIENT
  Age: 59 Year
  Sex: Male
  Weight: 81.63 kg

DRUGS (8)
  1. EPIVIR [Concomitant]
     Active Substance: LAMIVUDINE
  2. TRUVADA [Suspect]
     Active Substance: EMTRICITABINE\TENOFOVIR DISOPROXIL FUMARATE
     Indication: HIV INFECTION
     Dosage: UNK
     Route: 048
     Dates: start: 2011, end: 201808
  3. NORCO [Concomitant]
     Active Substance: ACETAMINOPHEN\HYDROCODONE BITARTRATE
  4. PREZISTA [Concomitant]
     Active Substance: DARUNAVIR ETHANOLATE
  5. METOLAZONE. [Concomitant]
     Active Substance: METOLAZONE
  6. NORVIR [Concomitant]
     Active Substance: RITONAVIR
  7. RITONAVIR. [Concomitant]
     Active Substance: RITONAVIR
  8. LAMIVUDINE. [Concomitant]
     Active Substance: LAMIVUDINE

REACTIONS (8)
  - Anhedonia [Not Recovered/Not Resolved]
  - Acute kidney injury [Not Recovered/Not Resolved]
  - Anxiety [Not Recovered/Not Resolved]
  - Economic problem [Not Recovered/Not Resolved]
  - Emotional distress [Not Recovered/Not Resolved]
  - Pain [Not Recovered/Not Resolved]
  - Renal failure [Not Recovered/Not Resolved]
  - Chronic kidney disease [Not Recovered/Not Resolved]

NARRATIVE: CASE EVENT DATE: 2015
